FAERS Safety Report 10393202 (Version 1)
Quarter: 2014Q3

REPORT INFORMATION
  Report Type: Spontaneous
  Country: CZ (occurrence: CZ)
  Receive Date: 20140819
  Receipt Date: 20140819
  Transmission Date: 20150326
  Serious: Yes (Other)
  Sender: FDA-Public Use
  Company Number: CZ-TEVA-500765ISR

PATIENT
  Age: 3 Year
  Sex: Female
  Weight: 13 kg

DRUGS (2)
  1. PANADOL BABY [Concomitant]
     Indication: BODY TEMPERATURE INCREASED
     Route: 048
     Dates: start: 20140624, end: 20140624
  2. SUMAMED FORTE SIRUP [Suspect]
     Active Substance: AZITHROMYCIN DIHYDRATE
     Indication: PHARYNGITIS
     Route: 048
     Dates: start: 20140624, end: 20140626

REACTIONS (3)
  - Aggression [Recovered/Resolved]
  - Febrile convulsion [Recovered/Resolved]
  - Anger [Recovered/Resolved]

NARRATIVE: CASE EVENT DATE: 20140624
